FAERS Safety Report 10354634 (Version 1)
Quarter: 2014Q3

REPORT INFORMATION
  Report Type: Spontaneous
  Country: US (occurrence: None)
  Receive Date: 20140729
  Receipt Date: 20140729
  Transmission Date: 20150326
  Serious: Yes (Disabling, Other)
  Sender: FDA-Public Use
  Company Number: None

PATIENT
  Age: 45 Year
  Sex: Male
  Weight: 81.65 kg

DRUGS (1)
  1. DRINKING WATER WITH FLUORIDE [Suspect]
     Active Substance: FLUORIDE ION
     Indication: TOXICITY TO VARIOUS AGENTS
     Dates: start: 20140102, end: 20140612

REACTIONS (3)
  - Discomfort [None]
  - Fluorosis [None]
  - Condition aggravated [None]

NARRATIVE: CASE EVENT DATE: 20140102
